APPROVED DRUG PRODUCT: CLOMIPHENE CITRATE
Active Ingredient: CLOMIPHENE CITRATE
Strength: 50MG
Dosage Form/Route: TABLET;ORAL
Application: A219406 | Product #001 | TE Code: AB
Applicant: ACCORD HEALTHCARE INC
Approved: Oct 3, 2025 | RLD: No | RS: No | Type: RX